FAERS Safety Report 8792119 (Version 1)
Quarter: 2012Q4

REPORT INFORMATION
  Report Type: 
  Country: US (occurrence: US)
  Receive Date: 20120918
  Receipt Date: 20120918
  Transmission Date: 20130627
  Serious: Yes (Other)
  Sender: FDA-Public Use
  Company Number: US-009507513-1209USA006043

PATIENT

DRUGS (1)
  1. SAPHRIS [Suspect]
     Route: 060

REACTIONS (5)
  - Asthenia [Unknown]
  - Dizziness [Unknown]
  - Dyspnoea [Unknown]
  - Fall [Unknown]
  - Hypoventilation [Unknown]
